FAERS Safety Report 9062144 (Version 1)
Quarter: 2013Q1

REPORT INFORMATION
  Report Type: Spontaneous
  Country: US (occurrence: US)
  Receive Date: 20130129
  Receipt Date: 20130129
  Transmission Date: 20140127
  Serious: Yes (Hospitalization)
  Sender: FDA-Public Use
  Company Number: US-ELI_LILLY_AND_COMPANY-US201207004210

PATIENT
  Age: 83 None
  Sex: Female

DRUGS (16)
  1. FORTEO [Suspect]
     Indication: OSTEOPOROSIS
     Dosage: 20 UG, QD
     Route: 065
     Dates: start: 20120606
  2. FORTEO [Suspect]
     Dosage: 20 UG, QD
     Route: 065
     Dates: start: 20120805
  3. FORTEO [Suspect]
     Dosage: 20 UG, QD
     Route: 065
  4. FORTEO [Suspect]
     Dosage: 20 UG, QD
     Route: 065
  5. FORTEO [Suspect]
     Dosage: 20 UG, QD
     Route: 065
     Dates: end: 2012
  6. FORTEO [Suspect]
     Dosage: 20 UG, QD
     Route: 065
  7. PROTONIX [Concomitant]
     Dosage: UNK, EACH MORNING BEFORE BREAKFAST
  8. CENTRUM                            /00554501/ [Concomitant]
     Dosage: UNK, EACH MORNING AFTER BREAKFAST
  9. CITRICAL                           /00751501/ [Concomitant]
     Dosage: UNK, EACH MORNING AND AFTER SUPPER
  10. VITAMIN D3 [Concomitant]
     Dosage: UNK, EACH MORNING
  11. MAGNESIUM [Concomitant]
     Dosage: UNK, EACH MORNING AND AFTER SUPPER
  12. METOPROLOL [Concomitant]
     Dosage: UNK, EACH MORNING AND AT NIGHT
  13. GABAPENTIN [Concomitant]
     Dosage: UNK, EACH MORNING AND AT NIGHT
  14. ASPIRIN [Concomitant]
     Dosage: 81 MG, EACH MORNING
  15. PRAVASTATIN [Concomitant]
     Dosage: AT BEDTIME
  16. CLOPIDOGREL                        /01220701/ [Concomitant]

REACTIONS (12)
  - Fall [Unknown]
  - Urinary tract infection [Unknown]
  - Musculoskeletal discomfort [Unknown]
  - Fall [Unknown]
  - Incorrect storage of drug [Unknown]
  - Accidental overdose [Unknown]
  - Injection site pain [Unknown]
  - Injection site haemorrhage [Unknown]
  - Back pain [Unknown]
  - Fall [Unknown]
  - Belligerence [Unknown]
  - Amnesia [Unknown]
